FAERS Safety Report 16737729 (Version 2)
Quarter: 2019Q4

REPORT INFORMATION
  Report Type: Spontaneous
  Country: DE (occurrence: DE)
  Receive Date: 20190823
  Receipt Date: 20191009
  Transmission Date: 20200122
  Serious: Yes (Hospitalization, Other)
  Sender: FDA-Public Use
  Company Number: DE-JAZZ-2019-DE-011588

PATIENT
  Age: 10 Year
  Sex: Female
  Weight: 29.7 kg

DRUGS (1)
  1. XYREM [Suspect]
     Active Substance: SODIUM OXYBATE
     Indication: PRODUCT USED FOR UNKNOWN INDICATION
     Dosage: 2.5 G, BID
     Route: 048
     Dates: start: 20190214, end: 20190819

REACTIONS (2)
  - Decreased appetite [Recovered/Resolved]
  - Coeliac disease [Recovering/Resolving]

NARRATIVE: CASE EVENT DATE: 201902
